FAERS Safety Report 17437878 (Version 3)
Quarter: 2020Q3

REPORT INFORMATION
  Report Type: Spontaneous
  Country: LU (occurrence: LU)
  Receive Date: 20200219
  Receipt Date: 20200731
  Transmission Date: 20201102
  Serious: Yes (Life-Threatening, Hospitalization, Disabling, Other)
  Sender: FDA-Public Use
  Company Number: LU-BRISTOL-MYERS SQUIBB COMPANY-BMS-2020-014058

PATIENT
  Age: 43 Year
  Sex: Female
  Weight: 66 kg

DRUGS (3)
  1. EUTHYROX [Concomitant]
     Active Substance: LEVOTHYROXINE SODIUM
     Indication: HYPOTHYROIDISM
     Dosage: 50 MICROGRAM, QD
     Route: 048
  2. OPDIVO [Suspect]
     Active Substance: NIVOLUMAB
     Indication: CERVIX CARCINOMA RECURRENT
     Dosage: 66 MILLIGRAM
     Route: 041
     Dates: start: 20200123, end: 20200123
  3. YERVOY [Suspect]
     Active Substance: IPILIMUMAB
     Indication: CERVIX CARCINOMA RECURRENT
     Dosage: 198 MILLIGRAM
     Route: 041
     Dates: start: 20200123, end: 20200123

REACTIONS (5)
  - Muscular weakness [Recovering/Resolving]
  - Myocarditis [Recovering/Resolving]
  - Hepatitis [Recovering/Resolving]
  - Intentional product use issue [Unknown]
  - Myositis [Recovering/Resolving]

NARRATIVE: CASE EVENT DATE: 20200130
